FAERS Safety Report 10770327 (Version 1)
Quarter: 2015Q1

REPORT INFORMATION
  Report Type: Spontaneous
  Country: US (occurrence: None)
  Receive Date: 20150204
  Receipt Date: 20150204
  Transmission Date: 20150721
  Serious: Yes (Death)
  Sender: FDA-Public Use
  Company Number: 2724326

PATIENT
  Age: 46 Year
  Sex: Female

DRUGS (4)
  1. ACETAMINOPHEN. [Suspect]
     Active Substance: ACETAMINOPHEN
  2. CODEINE [Suspect]
     Active Substance: CODEINE
  3. HYDROCODONE [Suspect]
     Active Substance: HYDROCODONE
  4. METHADONE [Suspect]
     Active Substance: METHADONE HYDROCHLORIDE

REACTIONS (2)
  - Toxicity to various agents [None]
  - Drug abuse [None]

NARRATIVE: CASE EVENT DATE: 2013
